FAERS Safety Report 22133665 (Version 2)
Quarter: 2023Q2

REPORT INFORMATION
  Report Type: Spontaneous
  Country: US (occurrence: US)
  Receive Date: 20230324
  Receipt Date: 20230424
  Transmission Date: 20230721
  Serious: No
  Sender: FDA-Public Use
  Company Number: US-JNJFOC-20230338882

PATIENT
  Sex: Female

DRUGS (2)
  1. SPRAVATO [Suspect]
     Active Substance: ESKETAMINE
     Indication: Major depression
     Route: 045
     Dates: start: 202205
  2. SPRAVATO [Suspect]
     Active Substance: ESKETAMINE
     Route: 045
     Dates: start: 20230309, end: 20230309

REACTIONS (5)
  - Drug ineffective [Unknown]
  - COVID-19 [Unknown]
  - Cough [Unknown]
  - Asthma [Unknown]
  - Dissociation [Unknown]

NARRATIVE: CASE EVENT DATE: 20220701
